FAERS Safety Report 20483583 (Version 5)
Quarter: 2022Q2

REPORT INFORMATION
  Report Type: Spontaneous
  Country: JP (occurrence: JP)
  Receive Date: 20220217
  Receipt Date: 20220520
  Transmission Date: 20220720
  Serious: Yes (Hospitalization, Other)
  Sender: FDA-Public Use
  Company Number: JP-TEVA-2022-JP-2009568

PATIENT
  Age: 78 Year
  Sex: Female
  Weight: 38 kg

DRUGS (5)
  1. AZILECT [Suspect]
     Active Substance: RASAGILINE MESYLATE
     Indication: Parkinson^s disease
     Dosage: 1 MILLIGRAM DAILY; AZILECT TABLETS 1MG
     Route: 048
     Dates: start: 20200428, end: 20220131
  2. LEVOTHYROXINE SODIUM [Concomitant]
     Active Substance: LEVOTHYROXINE SODIUM
     Route: 065
     Dates: start: 2005
  3. RABEPRAZOLE SODIUM [Concomitant]
     Active Substance: RABEPRAZOLE SODIUM
     Route: 065
     Dates: start: 2017
  4. BENSERAZIDE HYDROCHLORIDE\LEVODOPA [Concomitant]
     Active Substance: BENSERAZIDE HYDROCHLORIDE\LEVODOPA
     Route: 065
     Dates: start: 20200120
  5. DAYVIGO [Concomitant]
     Active Substance: LEMBOREXANT
     Route: 065
     Dates: start: 20211228

REACTIONS (5)
  - Syncope [Recovered/Resolved]
  - Colon cancer [Recovered/Resolved]
  - Blood pressure fluctuation [Not Recovered/Not Resolved]
  - Fall [Recovered/Resolved with Sequelae]
  - Periprosthetic fracture [Unknown]

NARRATIVE: CASE EVENT DATE: 20211210
